FAERS Safety Report 4758383-9 (Version None)
Quarter: 2005Q3

REPORT INFORMATION
  Report Type: 
  Country: None (occurrence: None)
  Receive Date: 20050826
  Receipt Date: 20050707
  Transmission Date: 20060218
  Serious: Yes (Hospitalization)
  Sender: FDA-Public Use
  Company Number: WAES 0507USA00710

PATIENT
  Age: 63 Year
  Sex: Male

DRUGS (2)
  1. ZETIA [Suspect]
     Indication: HYPERLIPIDAEMIA
     Dosage: 10 MG/DAILY/PO
     Route: 048
     Dates: end: 20050707
  2. SYNTHROID [Concomitant]

REACTIONS (1)
  - PANCREATITIS [None]
